FAERS Safety Report 9576823 (Version 1)
Quarter: 2013Q4

REPORT INFORMATION
  Report Type: Spontaneous
  Country: US (occurrence: US)
  Receive Date: 20131001
  Receipt Date: 20131001
  Transmission Date: 20140711
  Serious: No
  Sender: FDA-Public Use
  Company Number: US-AMGEN-USASP2013004804

PATIENT
  Sex: Female
  Weight: 65.31 kg

DRUGS (9)
  1. ENBREL [Suspect]
     Indication: PRODUCT USED FOR UNKNOWN INDICATION
     Dosage: 50 MG, QWK
     Route: 058
  2. COD LIVER OIL [Concomitant]
     Dosage: UNK
  3. SYNTHROID [Concomitant]
     Dosage: 88 MUG, UNK
  4. BUPROPION [Concomitant]
     Dosage: 75 MG, UNK
  5. HYDROCHLOROTHIAZID [Concomitant]
     Dosage: 12.5 MG, UNK
  6. VITAMIN D3 [Concomitant]
     Dosage: 400 IU, UNK
  7. DHA [Concomitant]
     Dosage: 200 MG, UNK
  8. VITAMIN C                          /00008001/ [Concomitant]
     Dosage: 500 MG, UNK
  9. VITAMIN B12                        /00056201/ [Concomitant]
     Dosage: 1000 CR, UNK

REACTIONS (1)
  - Sinusitis [Unknown]
